FAERS Safety Report 25527266 (Version 9)
Quarter: 2025Q4

REPORT INFORMATION
  Report Type: Spontaneous
  Country: CN (occurrence: CN)
  Receive Date: 20250708
  Receipt Date: 20251212
  Transmission Date: 20260118
  Serious: Yes (Death, Hospitalization, Other)
  Sender: JOHNSON AND JOHNSON
  Company Number: CN-JNJFOC-20250705005

PATIENT
  Age: 34 Year
  Sex: Male
  Weight: 107 kg

DRUGS (1)
  1. TREMFYA [Suspect]
     Active Substance: GUSELKUMAB
     Indication: Product used for unknown indication
     Dosage: 200 MG/20 ML/VIAL
     Route: 042

REACTIONS (11)
  - Cardiac arrest [Fatal]
  - Heart rate increased [Unknown]
  - Pyrexia [Unknown]
  - Rectal stenosis [Not Recovered/Not Resolved]
  - Crohn^s disease [Not Recovered/Not Resolved]
  - Hypersensitivity [Unknown]
  - Shock [Not Recovered/Not Resolved]
  - Coagulation test abnormal [Not Recovered/Not Resolved]
  - Hyperlactacidaemia [Not Recovered/Not Resolved]
  - Infection [Unknown]
  - Metabolic acidosis [Not Recovered/Not Resolved]

NARRATIVE: CASE EVENT DATE: 20250703
